FAERS Safety Report 18096863 (Version 2)
Quarter: 2020Q3

REPORT INFORMATION
  Report Type: Spontaneous
  Country: JP (occurrence: JP)
  Receive Date: 20200731
  Receipt Date: 20200807
  Transmission Date: 20201103
  Serious: Yes (Hospitalization, Other)
  Sender: FDA-Public Use
  Company Number: JP-PFIZER INC-2020288810

PATIENT
  Age: 69 Year
  Sex: Male

DRUGS (1)
  1. OXALIPLATIN. [Suspect]
     Active Substance: OXALIPLATIN
     Dosage: UNK, CYCLIC (SIX COURSES)

REACTIONS (4)
  - Mesenteric vein thrombosis [Recovering/Resolving]
  - Arteriovenous fistula [Recovered/Resolved]
  - Portal hypertension [Unknown]
  - Ascites [Recovered/Resolved]
